FAERS Safety Report 4618431-3 (Version None)
Quarter: 2005Q2

REPORT INFORMATION
  Report Type: 
  Country: None (occurrence: None)
  Receive Date: 20050311
  Receipt Date: 20041122
  Transmission Date: 20051028
  Serious: No
  Sender: FDA-Public Use
  Company Number: 2004-BP-10411BP

PATIENT
  Age: 70 Year
  Sex: Female

DRUGS (12)
  1. SPIRIVA [Suspect]
     Indication: CHRONIC OBSTRUCTIVE PULMONARY DISEASE
     Dosage: 18 MCG (18 MCG), IH
     Route: 055
     Dates: start: 20040615
  2. SPIRIVA [Suspect]
  3. OXYGEN (OXYGEN) [Concomitant]
  4. AZMACORT [Concomitant]
  5. ALBUTEROL [Concomitant]
  6. SEREVENT [Concomitant]
  7. PAXIL [Concomitant]
  8. LISINOPRIL [Concomitant]
  9. CLONIDINE [Concomitant]
  10. IPRATROPIUM BROMIDE [Concomitant]
  11. PREVACID [Concomitant]
  12. ZESTRIL [Concomitant]

REACTIONS (1)
  - DYSPNOEA [None]
